FAERS Safety Report 6214683-7 (Version None)
Quarter: 2009Q2

REPORT INFORMATION
  Report Type: 
  Country: None (occurrence: None)
  Receive Date: 20090604
  Receipt Date: 20090601
  Transmission Date: 20091009
  Serious: Yes (Life-Threatening, Hospitalization)
  Sender: FDA-Public Use
  Company Number: TR-ROXANE LABORATORIES, INC.-2009-RO-00543RO

PATIENT
  Age: 15 Year
  Sex: Female

DRUGS (21)
  1. METHOTREXATE [Suspect]
     Indication: BONE SARCOMA
  2. GRANISETRON HCL [Suspect]
     Indication: PROPHYLAXIS
  3. IFOSFAMIDE [Suspect]
     Indication: BONE SARCOMA
  4. DOXORUBICIN HCL [Suspect]
     Indication: BONE SARCOMA
  5. EPINEPHRINE [Concomitant]
     Indication: ANAPHYLACTIC REACTION
  6. EPINEPHRINE [Concomitant]
     Indication: CIRCULATORY COLLAPSE
  7. DEXAMETHASONE [Concomitant]
     Indication: ANAPHYLACTIC REACTION
  8. DEXAMETHASONE [Concomitant]
     Indication: CIRCULATORY COLLAPSE
  9. DIPHENHYDRAMINE HCL [Concomitant]
     Indication: ANAPHYLACTIC REACTION
  10. DIPHENHYDRAMINE HCL [Concomitant]
     Indication: CIRCULATORY COLLAPSE
  11. DOPAMINE HCL [Concomitant]
     Indication: ANAPHYLACTIC REACTION
  12. DOPAMINE HCL [Concomitant]
     Indication: CIRCULATORY COLLAPSE
  13. DOBUTAMINE HCL [Concomitant]
     Indication: ANAPHYLACTIC REACTION
  14. DOBUTAMINE HCL [Concomitant]
     Indication: CIRCULATORY COLLAPSE
  15. FLUIDS [Concomitant]
     Indication: ANAPHYLACTIC REACTION
     Route: 042
  16. FLUIDS [Concomitant]
     Indication: CIRCULATORY COLLAPSE
  17. CISPLATIN [Concomitant]
     Indication: BONE SARCOMA
  18. ETOPOSIDE [Concomitant]
     Indication: BONE SARCOMA
  19. CARBOPLATIN [Concomitant]
     Indication: BONE SARCOMA
  20. FOLINIC ACID RESCUE [Concomitant]
     Indication: RENAL IMPAIRMENT
  21. FOLINIC ACID RESCUE [Concomitant]
     Indication: BLOOD CREATININE INCREASED

REACTIONS (4)
  - ANAPHYLACTIC REACTION [None]
  - BLOOD CREATININE INCREASED [None]
  - CIRCULATORY COLLAPSE [None]
  - RENAL IMPAIRMENT [None]
